FAERS Safety Report 23182626 (Version 1)
Quarter: 2023Q4

REPORT INFORMATION
  Report Type: Spontaneous
  Country: CH (occurrence: CH)
  Receive Date: 20231114
  Receipt Date: 20231114
  Transmission Date: 20240110
  Serious: Yes (Other)
  Sender: FDA-Public Use
  Company Number: CH-PFIZER INC-PV202300182624

PATIENT
  Sex: Female

DRUGS (9)
  1. IBRANCE [Suspect]
     Active Substance: PALBOCICLIB
     Dosage: 125 MG, 1X/DAY (125 MG, QD)
     Dates: start: 20210322
  2. IBRANCE [Suspect]
     Active Substance: PALBOCICLIB
     Dosage: UNK (RESTARTED AFTER A PAUSE)
     Dates: start: 20210406
  3. IBRANCE [Suspect]
     Active Substance: PALBOCICLIB
     Dosage: 75 MG, CYCLIC (SECOND CYCLE)
     Dates: start: 20210420
  4. FASLODEX [Suspect]
     Active Substance: FULVESTRANT
     Indication: Breast cancer metastatic
     Dosage: UNK
     Dates: start: 20210322
  5. FASLODEX [Suspect]
     Active Substance: FULVESTRANT
     Dosage: UNK (ON DAY 15)
     Dates: start: 20210406
  6. FASLODEX [Suspect]
     Active Substance: FULVESTRANT
     Dosage: UNK (ON DAY 28)
     Dates: start: 20210420
  7. FASLODEX [Suspect]
     Active Substance: FULVESTRANT
     Dosage: 250 MG, 2X/DAY
     Dates: start: 20210518
  8. FASLODEX [Suspect]
     Active Substance: FULVESTRANT
     Dosage: 250 MG, 2X/DAY
     Route: 065
     Dates: start: 20210615
  9. FASLODEX [Suspect]
     Active Substance: FULVESTRANT
     Dosage: UNK
     Dates: start: 20210810

REACTIONS (4)
  - Erythema multiforme [Recovering/Resolving]
  - Fatigue [Unknown]
  - Urticaria [Unknown]
  - Eye swelling [Unknown]

NARRATIVE: CASE EVENT DATE: 20210101
